FAERS Safety Report 19908128 (Version 2)
Quarter: 2021Q4

REPORT INFORMATION
  Report Type: Spontaneous
  Country: US (occurrence: US)
  Receive Date: 20211002
  Receipt Date: 20211020
  Transmission Date: 20220303
  Serious: Yes (Hospitalization)
  Sender: FDA-Public Use
  Company Number: US-ROCHE-2922442

PATIENT
  Sex: Male

DRUGS (2)
  1. OCREVUS [Suspect]
     Active Substance: OCRELIZUMAB
     Indication: Relapsing-remitting multiple sclerosis
     Dosage: LAST OCRELIZUMAB IN /AUG/2021
     Route: 042
  2. COVID-19 VACCINE [Concomitant]

REACTIONS (2)
  - Pyrexia [Not Recovered/Not Resolved]
  - COVID-19 pneumonia [Unknown]
